FAERS Safety Report 20058501 (Version 1)
Quarter: 2021Q4

REPORT INFORMATION
  Report Type: Spontaneous
  Country: US (occurrence: None)
  Receive Date: 20211110
  Receipt Date: 20211110
  Transmission Date: 20220304
  Serious: Yes (Death)
  Sender: FDA-Public Use
  Company Number: None

PATIENT
  Sex: Male
  Weight: 97.0 kg

DRUGS (4)
  1. HYDROXYUREA [Suspect]
     Active Substance: HYDROXYUREA
     Indication: Essential thrombocythaemia
     Dosage: FREQUENCY : DAILY;?
     Route: 048
     Dates: start: 20200516
  2. ATORVASTATIN [Concomitant]
     Active Substance: ATORVASTATIN
  3. CLOPIDOGREL [Concomitant]
     Active Substance: CLOPIDOGREL BISULFATE
  4. OMEPRAZOLE [Concomitant]
     Active Substance: OMEPRAZOLE

REACTIONS (1)
  - Death [None]
